FAERS Safety Report 6368309-2 (Version None)
Quarter: 2009Q3

REPORT INFORMATION
  Report Type: 
  Country: None (occurrence: None)
  Receive Date: 20090922
  Receipt Date: 20090910
  Transmission Date: 20100115
  Serious: Yes (Hospitalization)
  Sender: FDA-Public Use
  Company Number: US-KINGPHARMUSA00001-K200901113

PATIENT
  Sex: Female
  Weight: 2.86 kg

DRUGS (2)
  1. CORGARD [Suspect]
     Dosage: 80 MG, QAM
     Route: 064
     Dates: start: 20090101, end: 20090331
  2. CORGARD [Suspect]
     Dosage: 40 MG, QPM
     Route: 064
     Dates: start: 20090101, end: 20090331

REACTIONS (3)
  - BRADYCARDIA NEONATAL [None]
  - HYPOTHERMIA NEONATAL [None]
  - NEONATAL RESPIRATORY DISTRESS SYNDROME [None]
